FAERS Safety Report 15984352 (Version 2)
Quarter: 2019Q1

REPORT INFORMATION
  Report Type: Spontaneous
  Country: IT (occurrence: IT)
  Receive Date: 20190219
  Receipt Date: 20190227
  Transmission Date: 20190418
  Serious: Yes (Death, Hospitalization)
  Sender: FDA-Public Use
  Company Number: IT-BAXTER-2019BAX002579

PATIENT
  Age: 85 Year
  Sex: Male

DRUGS (1)
  1. SOLUZIONE PER DIALISI PERITONEALE BAXTER [Suspect]
     Active Substance: CALCIUM CHLORIDE\DEXTROSE\MAGNESIUM CHLORIDE\SODIUM CHLORIDE\SODIUM LACTATE
     Indication: PERITONEAL DIALYSIS
     Dosage: 2 BAGS PER NIGHT
     Route: 033
     Dates: end: 20190119

REACTIONS (4)
  - Cachexia [Fatal]
  - Peritonitis bacterial [Not Recovered/Not Resolved]
  - Asthenia [Unknown]
  - Peritoneal dialysis complication [Unknown]

NARRATIVE: CASE EVENT DATE: 20190119
